FAERS Safety Report 7124203-0 (Version None)
Quarter: 2010Q4

REPORT INFORMATION
  Report Type: 
  Country: None (occurrence: None)
  Receive Date: 20101126
  Receipt Date: 20101116
  Transmission Date: 20110411
  Serious: Yes (Other)
  Sender: FDA-Public Use
  Company Number: PHHY2010BR79032

PATIENT
  Sex: Female

DRUGS (1)
  1. ACLASTA [Suspect]
     Dosage: 5MG/100ML

REACTIONS (3)
  - NEOPLASM MALIGNANT [None]
  - SPEECH DISORDER [None]
  - SURGERY [None]
